FAERS Safety Report 8549574-X (Version None)
Quarter: 2012Q3

REPORT INFORMATION
  Report Type: 
  Country: None (occurrence: None)
  Receive Date: 20120730
  Receipt Date: 20100319
  Transmission Date: 20120928
  Serious: Yes (Hospitalization)
  Sender: FDA-Public Use
  Company Number: US-AMGEN-KDC400825

PATIENT
  Age: 64 Year
  Sex: Male
  Weight: 59.7 kg

DRUGS (24)
  1. GABAPENTIN [Concomitant]
  2. GLUCOSAMINE [Concomitant]
  3. ATORVASTATIN CALCIUM [Concomitant]
  4. DILTIAZEM HCL [Concomitant]
  5. ASPIRIN [Concomitant]
  6. DOCETAXEL [Suspect]
     Dosage: 129 MG, Q3WK
     Route: 042
     Dates: start: 20100223
  7. CEPHALEXIN MONOHYDRATE [Concomitant]
  8. ERYTHROMYCIN [Concomitant]
  9. DIPHENHYDRAMINE HCL [Concomitant]
  10. OXYCODONE HCL [Concomitant]
  11. AMITRIPTYLINE HYDROCHLORIDE [Concomitant]
  12. NICOTINE [Concomitant]
  13. DEXAMETHASONE [Concomitant]
  14. MAGNESIUM HYDROXIDE TAB [Concomitant]
  15. OXCARBAZEPINE [Concomitant]
  16. GINGKO BILOBA [Concomitant]
  17. DIAZEPAM [Concomitant]
  18. CISPLATIN [Suspect]
     Dosage: 172 MG, Q3WK
     Route: 042
     Dates: start: 20100223
  19. FLUOROURACIL [Suspect]
     Dosage: 5504 MG, Q3WK
     Route: 042
     Dates: start: 20100223
  20. DEXLANSOPRAZOLE [Concomitant]
  21. LIDOCAINE [Concomitant]
  22. ONDANSETRON HYDROCHLORIDE [Concomitant]
  23. PANITUMUMAB [Suspect]
     Indication: SQUAMOUS CELL CARCINOMA
  24. METOCLOPRAMIDE [Concomitant]

REACTIONS (3)
  - DIARRHOEA [None]
  - FEBRILE NEUTROPENIA [None]
  - URINARY RETENTION [None]
